FAERS Safety Report 10244648 (Version 5)
Quarter: 2014Q4

REPORT INFORMATION
  Report Type: Spontaneous
  Country: JP (occurrence: JP)
  Receive Date: 20140618
  Receipt Date: 20141117
  Transmission Date: 20150528
  Serious: Yes (Hospitalization, Other)
  Sender: FDA-Public Use
  Company Number: JP-GLAXOSMITHKLINE-B0998488A

PATIENT
  Age: 72 Year
  Sex: Male

DRUGS (16)
  1. PURSENNID [Concomitant]
     Active Substance: SENNOSIDES A AND B
     Dosage: 1 DF, QD
  2. SENNA [Concomitant]
     Active Substance: SENNA LEAF\SENNOSIDES\SENNOSIDES A AND B
     Dosage: 0.5 G, QD
  3. CALTAN [Concomitant]
     Active Substance: CALCIUM CARBONATE
     Dosage: 250 MG, TID
  4. PLETAAL [Concomitant]
     Active Substance: CILOSTAZOL
     Dosage: 50 MG, BID
  5. ALFAROL [Concomitant]
     Active Substance: ALFACALCIDOL
     Dosage: 0.25 ?G, QD
  6. FERROMIA [Concomitant]
     Active Substance: FERROUS CITRATE
     Dosage: 50 MG, QD
  7. WARFARIN [Concomitant]
     Active Substance: WARFARIN
     Dosage: 1.5 MG, QD
  8. CALONAL [Concomitant]
     Active Substance: ACETAMINOPHEN
     Dosage: 3 DF, TID
  9. HYPEN [Concomitant]
     Active Substance: ETODOLAC
     Dosage: 200 MG, QD
  10. BI_SIFROL [Concomitant]
     Dosage: 0.125 MG, QD
  11. TAKEPRON [Concomitant]
     Active Substance: LANSOPRAZOLE
     Dosage: 15 MG, QD
  12. AMIODARONE HYDROCHLORIDE. [Concomitant]
     Active Substance: AMIODARONE HYDROCHLORIDE
     Dosage: 50 MG, QD
  13. TANATRIL [Concomitant]
     Active Substance: IMIDAPRIL
     Dosage: 5 MG, QD
  14. VALACICLOVIR HYDROCHLORIDE [Suspect]
     Active Substance: VALACYCLOVIR HYDROCHLORIDE
     Indication: HERPES ZOSTER
     Dosage: 500 MG, QD
     Route: 048
     Dates: start: 20140518, end: 20140527
  15. BAYASPIRIN [Concomitant]
     Active Substance: ASPIRIN
     Dosage: 100 MG, QD
  16. ARTIST [Concomitant]
     Active Substance: CARVEDILOL
     Dosage: 2.5 MG, BID

REACTIONS (9)
  - Toxic encephalopathy [Recovered/Resolved]
  - Dyslalia [Recovered/Resolved]
  - Facial paresis [Recovered/Resolved]
  - Delirium [Recovered/Resolved]
  - Gait disturbance [Recovered/Resolved]
  - Motor dysfunction [Recovered/Resolved]
  - Gait disturbance [Recovered/Resolved]
  - Disorientation [Recovered/Resolved]
  - Anger [Recovered/Resolved]

NARRATIVE: CASE EVENT DATE: 20140524
